FAERS Safety Report 9637208 (Version 1)
Quarter: 2013Q4

REPORT INFORMATION
  Report Type: Spontaneous
  Country: US (occurrence: US)
  Receive Date: 20131022
  Receipt Date: 20131022
  Transmission Date: 20140711
  Serious: Yes (Other)
  Sender: FDA-Public Use
  Company Number: US-JNJFOC-20131009796

PATIENT
  Age: 58 Year
  Sex: Male

DRUGS (9)
  1. STELARA [Suspect]
     Indication: PSORIASIS
     Route: 058
     Dates: start: 20110520, end: 201202
  2. STELARA [Suspect]
     Indication: PSORIASIS
     Route: 058
     Dates: start: 201304
  3. ALEVE [Concomitant]
     Route: 065
  4. ASPIRIN [Concomitant]
     Route: 065
  5. GLIPIZIDE [Concomitant]
     Route: 065
  6. THYROID [Concomitant]
     Indication: THYROID DISORDER
     Route: 065
  7. VIAGRA [Concomitant]
     Route: 065
  8. LEXAPRO [Concomitant]
     Route: 065
  9. GABAPENTIN [Concomitant]
     Route: 065

REACTIONS (4)
  - Vitiligo [Unknown]
  - Herpes zoster [Unknown]
  - Weight decreased [Unknown]
  - Drug dose omission [Unknown]
